FAERS Safety Report 10267336 (Version 4)
Quarter: 2014Q4

REPORT INFORMATION
  Report Type: Spontaneous
  Country: JP (occurrence: JP)
  Receive Date: 20140630
  Receipt Date: 20141014
  Transmission Date: 20150528
  Serious: Yes (Death, Other)
  Sender: FDA-Public Use
  Company Number: PHHY2014JP078433

PATIENT
  Age: 90 Year
  Sex: Female
  Weight: 39 kg

DRUGS (10)
  1. PREDONINE [Concomitant]
     Active Substance: PREDNISOLONE\PREDNISOLONE ACETATE\PREDNISOLONE SODIUM SUCCINATE
     Indication: RHEUMATOID ARTHRITIS
     Dosage: 5 MG, UNK
     Route: 065
     Dates: start: 20140618
  2. NEORAL [Suspect]
     Active Substance: CYCLOSPORINE
     Dosage: 100 MG, DAILY
     Route: 048
     Dates: start: 20130903
  3. NEORAL [Suspect]
     Active Substance: CYCLOSPORINE
     Dosage: 100 MG,DAILY, (50 MG, BID)
     Route: 048
     Dates: start: 20140617, end: 20140618
  4. NEORAL [Suspect]
     Active Substance: CYCLOSPORINE
     Dosage: 200 MG, DAILY
     Route: 048
  5. LANSOPRAZOLE. [Concomitant]
     Active Substance: LANSOPRAZOLE
     Indication: GASTRIC ULCER
     Dosage: 30 MG, UNK
     Route: 048
     Dates: start: 20140618
  6. ALDACTONE [Concomitant]
     Active Substance: SPIRONOLACTONE
     Indication: PRODUCT USED FOR UNKNOWN INDICATION
     Dosage: 25 MG, UNK
     Route: 048
     Dates: start: 20140516, end: 20140618
  7. NEORAL [Suspect]
     Active Substance: CYCLOSPORINE
     Indication: APLASIA PURE RED CELL
     Dosage: 200 MG, DAILY
     Route: 048
  8. NEORAL [Suspect]
     Active Substance: CYCLOSPORINE
     Dosage: 150 MG, DAILY, (50 MG TID)
     Route: 048
     Dates: start: 20140606
  9. DONEPEZIL HCL [Concomitant]
     Active Substance: DONEPEZIL HYDROCHLORIDE
     Indication: RHEUMATOID ARTHRITIS
     Dosage: 10 MG, UNK
     Route: 048
     Dates: start: 20140618
  10. LASIX [Concomitant]
     Active Substance: FUROSEMIDE
     Indication: PRODUCT USED FOR UNKNOWN INDICATION
     Dosage: 25 MG, UNK
     Route: 048
     Dates: start: 20140516, end: 20140618

REACTIONS (25)
  - Atrial fibrillation [Unknown]
  - Shock [Unknown]
  - Escherichia infection [Unknown]
  - Blood creatinine increased [Not Recovered/Not Resolved]
  - Device related infection [Recovered/Resolved]
  - Candida sepsis [Unknown]
  - Blood bilirubin increased [Not Recovered/Not Resolved]
  - C-reactive protein increased [Not Recovered/Not Resolved]
  - Blood culture positive [Unknown]
  - Blood pressure systolic increased [Unknown]
  - Blood alkaline phosphatase increased [Not Recovered/Not Resolved]
  - Fungal infection [Fatal]
  - Haemoglobin decreased [Not Recovered/Not Resolved]
  - Blood urea increased [Not Recovered/Not Resolved]
  - Immunosuppressant drug level increased [Unknown]
  - Cardiac failure [Fatal]
  - Sepsis [Fatal]
  - Red blood cell count decreased [Not Recovered/Not Resolved]
  - Aspartate aminotransferase increased [Not Recovered/Not Resolved]
  - Alanine aminotransferase increased [Recovered/Resolved]
  - Blood glucose increased [Not Recovered/Not Resolved]
  - Urinary tract infection [Recovered/Resolved]
  - Gamma-glutamyltransferase increased [Not Recovered/Not Resolved]
  - Hypoxia [Unknown]
  - Pyrexia [Recovered/Resolved]

NARRATIVE: CASE EVENT DATE: 20140510
